FAERS Safety Report 5430441-5 (Version None)
Quarter: 2007Q3

REPORT INFORMATION
  Report Type: 
  Country: None (occurrence: None)
  Receive Date: 20070830
  Receipt Date: 20070822
  Transmission Date: 20080115
  Serious: Yes (Hospitalization)
  Sender: FDA-Public Use
  Company Number: PHBS2007JP12983

PATIENT
  Age: 79 Year
  Sex: Male

DRUGS (10)
  1. LIORESAL [Suspect]
     Indication: NEURALGIA
     Dosage: UNK, UNK
     Route: 048
     Dates: start: 20070720, end: 20070727
  2. FLIVAS [Concomitant]
     Indication: DYSURIA
     Dosage: 50 MG/DAY
     Route: 048
  3. NERSET [Concomitant]
     Indication: DYSURIA
     Dosage: 6 DF/DAY
     Route: 048
  4. MUCOSTA [Concomitant]
     Dosage: 300 MG/DAY
     Route: 048
  5. DOGMATYL [Concomitant]
     Dosage: 150 MG/DAY
     Route: 048
  6. ALOSENN [Concomitant]
     Dosage: 2 DF/DAY
     Route: 048
  7. TEGRETOL [Suspect]
     Indication: NEURALGIA
     Dosage: UNK, UNK
     Route: 048
     Dates: end: 20070713
  8. NEUROTROPIN [Concomitant]
     Indication: NEURALGIA
     Dates: end: 20070713
  9. MAGMITT KENEI [Concomitant]
     Dosage: 990 MG/DAY
     Route: 048
  10. CLONAZEPAM [Concomitant]
     Indication: NEURALGIA
     Route: 048

REACTIONS (11)
  - BIOPSY SKIN ABNORMAL [None]
  - BLISTER [None]
  - BLOOD URINE PRESENT [None]
  - DERMATITIS BULLOUS [None]
  - ECZEMA [None]
  - EOSINOPHIL COUNT INCREASED [None]
  - ERYTHEMA [None]
  - HEPATIC FUNCTION ABNORMAL [None]
  - OEDEMA PERIPHERAL [None]
  - PEMPHIGOID [None]
  - PROTEIN URINE PRESENT [None]
